FAERS Safety Report 4599892-5 (Version None)
Quarter: 2005Q1

REPORT INFORMATION
  Report Type: 
  Country: None (occurrence: None)
  Receive Date: 20050303
  Receipt Date: 20050215
  Transmission Date: 20050727
  Serious: Yes (Hospitalization, Other)
  Sender: FDA-Public Use
  Company Number: JP_050205897

PATIENT
  Age: 52 Year
  Sex: Female

DRUGS (3)
  1. ONCOVIN [Suspect]
     Indication: ACUTE LYMPHOCYTIC LEUKAEMIA
     Dates: start: 20000527
  2. CYCLOPHOSPHAMIDE [Concomitant]
  3. DAUNORUBICIN HYDROCHLORIDE [Concomitant]

REACTIONS (6)
  - BACTERIAL INFECTION [None]
  - BRONCHOPULMONARY ASPERGILLOSIS [None]
  - CARDIOVASCULAR DISORDER [None]
  - STEM CELL TRANSPLANT [None]
  - THERAPY NON-RESPONDER [None]
  - WHITE BLOOD CELL COUNT DECREASED [None]
